FAERS Safety Report 10731089 (Version 1)
Quarter: 2015Q1

REPORT INFORMATION
  Report Type: Spontaneous
  Country: US (occurrence: CA)
  Receive Date: 20150122
  Receipt Date: 20150122
  Transmission Date: 20150721
  Serious: Yes (Hospitalization)
  Sender: FDA-Public Use
  Company Number: US-ELI_LILLY_AND_COMPANY-CA201501007647

PATIENT
  Age: 54 Year
  Sex: Male

DRUGS (3)
  1. CLOZAPINE. [Concomitant]
     Active Substance: CLOZAPINE
  2. METOPROLOL [Concomitant]
     Active Substance: METOPROLOL
     Indication: ATRIAL FLUTTER
  3. OLANZAPINE. [Suspect]
     Active Substance: OLANZAPINE
     Indication: DELUSIONAL DISORDER, UNSPECIFIED TYPE
     Dosage: UNK
     Route: 048

REACTIONS (2)
  - Neuroleptic malignant syndrome [Recovered/Resolved]
  - Neutropenia [Recovered/Resolved]
